FAERS Safety Report 4642339-0 (Version None)
Quarter: 2005Q2

REPORT INFORMATION
  Report Type: 
  Country: None (occurrence: None)
  Receive Date: 20050421
  Receipt Date: 20050421
  Transmission Date: 20051028
  Serious: Yes (Disabling)
  Sender: FDA-Public Use
  Company Number: None

PATIENT
  Age: 18 Year
  Sex: Female
  Weight: 79.3795 kg

DRUGS (1)
  1. ZOLOFT [Suspect]
     Dosage: 1 PILL   1 ONE A DAY   ORAL
     Route: 048

REACTIONS (3)
  - COORDINATION ABNORMAL [None]
  - DYSGRAPHIA [None]
  - TREMOR [None]
